FAERS Safety Report 19687345 (Version 2)
Quarter: 2021Q3

REPORT INFORMATION
  Report Type: Spontaneous
  Country: PL (occurrence: PL)
  Receive Date: 20210812
  Receipt Date: 20210922
  Transmission Date: 20211014
  Serious: Yes (Other)
  Sender: FDA-Public Use
  Company Number: PL-BAUSCH-BL-2021-027289

PATIENT
  Sex: Male

DRUGS (7)
  1. KYPROLIS [Suspect]
     Active Substance: CARFILZOMIB
     Dosage: UNK 14 VIALS
     Route: 065
     Dates: start: 20210520
  2. KYPROLIS [Suspect]
     Active Substance: CARFILZOMIB
     Dosage: UNK 4 VIALS
     Route: 065
     Dates: start: 20210506
  3. KYPROLIS [Suspect]
     Active Substance: CARFILZOMIB
     Indication: PRODUCT USED FOR UNKNOWN INDICATION
     Dosage: UNK 14 VIALS
     Route: 065
     Dates: start: 20210513
  4. KYPROLIS [Suspect]
     Active Substance: CARFILZOMIB
     Route: 065
  5. KYPROLIS [Suspect]
     Active Substance: CARFILZOMIB
     Dosage: UNK 14 VIALS
     Route: 065
     Dates: start: 20210607
  6. DEXAMETHASONE. [Suspect]
     Active Substance: DEXAMETHASONE
     Indication: PRODUCT USED FOR UNKNOWN INDICATION
     Route: 065
  7. KYPROLIS [Suspect]
     Active Substance: CARFILZOMIB
     Dosage: UNK 14 VIALS
     Route: 065
     Dates: start: 20210614

REACTIONS (3)
  - Off label use [Unknown]
  - Disease progression [Unknown]
  - Renal failure [Unknown]
